FAERS Safety Report 6750220-6 (Version None)
Quarter: 2010Q2

REPORT INFORMATION
  Report Type: 
  Country: None (occurrence: None)
  Receive Date: 20100601
  Receipt Date: 20100520
  Transmission Date: 20101027
  Serious: Yes (Other)
  Sender: FDA-Public Use
  Company Number: JP-PFIZER INC-2010066634

PATIENT

DRUGS (2)
  1. ZOLOFT [Suspect]
     Dosage: 50 MG, UNK
     Route: 048
  2. ZOLOFT [Suspect]
     Dosage: 100 MG, UNK
     Route: 048

REACTIONS (1)
  - VISUAL ACUITY REDUCED [None]
